FAERS Safety Report 13858940 (Version 1)
Quarter: 2017Q3

REPORT INFORMATION
  Report Type: Spontaneous
  Country: US (occurrence: US)
  Receive Date: 20170811
  Receipt Date: 20170811
  Transmission Date: 20171127
  Serious: Yes (Hospitalization)
  Sender: FDA-Public Use
  Company Number: US-ROCHE-1972572

PATIENT
  Age: 25 Year
  Sex: Female
  Weight: 61.29 kg

DRUGS (9)
  1. KLONOPIN [Suspect]
     Active Substance: CLONAZEPAM
     Dosage: 2X A DAY 8 HOURS APART WAKING HOURS; MELT AWAYS
     Route: 048
     Dates: start: 20170713, end: 20170719
  2. XANAX [Concomitant]
     Active Substance: ALPRAZOLAM
  3. SYNTHROID [Concomitant]
     Active Substance: LEVOTHYROXINE SODIUM
     Indication: AUTOIMMUNE THYROIDITIS
     Dosage: 112 MCG
     Route: 048
  4. ZYPREXA [Concomitant]
     Active Substance: OLANZAPINE
  5. KLONOPIN [Suspect]
     Active Substance: CLONAZEPAM
     Indication: PRODUCT USED FOR UNKNOWN INDICATION
     Dosage: MELT AWAY
     Route: 048
     Dates: start: 20170529, end: 201706
  6. KLONOPIN [Suspect]
     Active Substance: CLONAZEPAM
     Dosage: MELT AWAYS
     Route: 048
     Dates: start: 201706, end: 20170620
  7. KLONOPIN [Suspect]
     Active Substance: CLONAZEPAM
     Dosage: 3X A DAY 6 HOURS APART WAKING HOURS
     Route: 048
     Dates: start: 20170621, end: 20170712
  8. KLONOPIN [Suspect]
     Active Substance: CLONAZEPAM
     Dosage: 2 TIMES A DAY  12 HOURS APART WAKING HOURS
     Route: 048
     Dates: start: 20170720, end: 20170726
  9. KLONOPIN [Suspect]
     Active Substance: CLONAZEPAM
     Dosage: 2 TIMES A DAY 8 HOURS APART WAKING HOURS; MELT AWAY
     Route: 048
     Dates: start: 20170727, end: 20170729

REACTIONS (11)
  - Memory impairment [Not Recovered/Not Resolved]
  - Loss of consciousness [Recovered/Resolved]
  - Ill-defined disorder [Not Recovered/Not Resolved]
  - Anxiety [Not Recovered/Not Resolved]
  - Facial paralysis [Not Recovered/Not Resolved]
  - Agitation [Recovered/Resolved]
  - Disorientation [Not Recovered/Not Resolved]
  - Feeling hot [Recovered/Resolved]
  - Pain [Not Recovered/Not Resolved]
  - Aggression [Recovered/Resolved]
  - Pyrexia [Recovered/Resolved]

NARRATIVE: CASE EVENT DATE: 201706
